FAERS Safety Report 9892092 (Version 1)
Quarter: 2014Q1

REPORT INFORMATION
  Report Type: Spontaneous
  Country: JP (occurrence: JP)
  Receive Date: 20140212
  Receipt Date: 20140212
  Transmission Date: 20141002
  Serious: Yes (Hospitalization)
  Sender: FDA-Public Use
  Company Number: JP-GLAXOSMITHKLINE-B0946768A

PATIENT
  Age: 14 Year
  Sex: Female
  Weight: 80 kg

DRUGS (3)
  1. LAMICTAL [Suspect]
     Indication: EPILEPSY
     Dosage: 200MG TWICE PER DAY
     Route: 048
  2. LAMICTAL [Suspect]
     Indication: EPILEPSY
     Dosage: 700MG PER DAY
     Route: 048
     Dates: start: 20131114, end: 20131114
  3. PHENOBAL [Concomitant]
     Route: 065

REACTIONS (3)
  - Cerebellar ataxia [Recovered/Resolved]
  - Dizziness [Recovered/Resolved]
  - Overdose [Unknown]
